FAERS Safety Report 23695476 (Version 2)
Quarter: 2024Q2

REPORT INFORMATION
  Report Type: Report from Study
  Country: US (occurrence: US)
  Receive Date: 20240402
  Receipt Date: 20240502
  Transmission Date: 20240715
  Serious: No
  Sender: FDA-Public Use
  Company Number: US-LUNDBECK-DKLU3075694

PATIENT
  Age: 58 Year
  Sex: Female

DRUGS (1)
  1. VYEPTI [Suspect]
     Active Substance: EPTINEZUMAB-JJMR
     Indication: Migraine
     Route: 041
     Dates: start: 20240311

REACTIONS (1)
  - Sinus headache [Unknown]
